FAERS Safety Report 6582467-6 (Version None)
Quarter: 2010Q1

REPORT INFORMATION
  Report Type: 
  Country: None (occurrence: None)
  Receive Date: 20100216
  Receipt Date: 20100204
  Transmission Date: 20100710
  Serious: Yes (Hospitalization, Other)
  Sender: FDA-Public Use
  Company Number: PHHY2010TR03278

PATIENT
  Age: 8 Year
  Sex: Female

DRUGS (3)
  1. METHYLPHENIDATE [Suspect]
     Indication: ATTENTION DEFICIT/HYPERACTIVITY DISORDER
     Dosage: 5 MG PER DAY
     Route: 048
  2. METHYLPHENIDATE [Suspect]
     Dosage: 5 MG, BID
     Route: 048
  3. METHYLPHENIDATE [Suspect]
     Dosage: 210 MG, ONCE/SINGLE
     Route: 048

REACTIONS (20)
  - AGITATION [None]
  - BLOOD PRESSURE INCREASED [None]
  - CONFUSIONAL STATE [None]
  - CRYING [None]
  - DELUSION [None]
  - DEPRESSED MOOD [None]
  - FEELING JITTERY [None]
  - HALLUCINATION [None]
  - HEART RATE INCREASED [None]
  - HYPERTENSION [None]
  - IRRITABILITY [None]
  - LOGORRHOEA [None]
  - MOOD ALTERED [None]
  - MOROSE [None]
  - OVERDOSE [None]
  - PSYCHOMOTOR HYPERACTIVITY [None]
  - RESPIRATORY RATE INCREASED [None]
  - RESTLESSNESS [None]
  - SUICIDE ATTEMPT [None]
  - TACHYCARDIA [None]
